FAERS Safety Report 10399238 (Version 2)
Quarter: 2014Q3

REPORT INFORMATION
  Report Type: Spontaneous
  Country: US (occurrence: None)
  Receive Date: 20130815
  Receipt Date: 20140815
  Transmission Date: 20150326
  Serious: Yes (Hospitalization, Other)
  Sender: FDA-Public Use
  Company Number: ADR-2013-00811

PATIENT
  Sex: Female

DRUGS (1)
  1. LIORESAL [Suspect]
     Active Substance: BACLOFEN
     Indication: MUSCLE SPASTICITY
     Dosage: 1369.9MCG/DAY

REACTIONS (10)
  - Therapeutic response decreased [None]
  - Muscle spasticity [None]
  - Somnolence [None]
  - Agitation [None]
  - Irritability [None]
  - Constipation [None]
  - Nephrolithiasis [None]
  - Disturbance in social behaviour [None]
  - Hypotonia [None]
  - Sinusitis [None]
